FAERS Safety Report 9167484 (Version 1)
Quarter: 2013Q1

REPORT INFORMATION
  Report Type: Spontaneous
  Country: IT (occurrence: None)
  Receive Date: 20130307
  Receipt Date: 20130307
  Transmission Date: 20140127
  Serious: Yes (Hospitalization)
  Sender: FDA-Public Use
  Company Number: 2013AP003348

PATIENT
  Age: 36 Year
  Sex: Female

DRUGS (4)
  1. ZOLPIDEM (ZOLPIDEM) [Suspect]
     Indication: DRUG ABUSE
     Dosage: UNKNOWN; TAB; PO; UNKNOWN
     Route: 048
     Dates: start: 20130114, end: 20130114
  2. CITALOPRAM (CITALOPRAM) [Suspect]
     Indication: DRUG ABUSE
     Dosage: UNKNOWN; TAB; PO; UNKNOWN
     Route: 048
     Dates: start: 20130114, end: 20130114
  3. LORAZEPAM (LORAZEPAM) [Suspect]
     Indication: DRUG ABUSE
     Dosage: UNKNOWN; TAB; PO; UNKNOWN
     Route: 048
     Dates: start: 20130114, end: 20130114
  4. DEPAKIN [Suspect]
     Indication: DRUG ABUSE
     Dosage: UNKNOWN; TAB; PO; UNKNOWN
     Route: 048
     Dates: start: 20130114, end: 20130114

REACTIONS (4)
  - Sopor [None]
  - Mydriasis [None]
  - Suicide attempt [None]
  - Drug abuse [None]
